FAERS Safety Report 19749422 (Version 1)
Quarter: 2021Q3

REPORT INFORMATION
  Report Type: Spontaneous
  Country: US (occurrence: US)
  Receive Date: 20210824
  Receipt Date: 20210824
  Transmission Date: 20211014
  Serious: No
  Sender: FDA-Public Use
  Company Number: None

PATIENT
  Age: 39 Year
  Sex: Male

DRUGS (1)
  1. HUMIRA [Suspect]
     Active Substance: ADALIMUMAB
     Indication: ANKYLOSING SPONDYLITIS
     Dosage: OTHER FREQUENCY:EVERY 14 DAYS ;?
     Route: 058
     Dates: start: 20210610

REACTIONS (2)
  - Device defective [None]
  - Device leakage [None]

NARRATIVE: CASE EVENT DATE: 20210816
